FAERS Safety Report 16284006 (Version 1)
Quarter: 2019Q2

REPORT INFORMATION
  Report Type: Spontaneous
  Country: MX (occurrence: MX)
  Receive Date: 20190507
  Receipt Date: 20190507
  Transmission Date: 20190711
  Serious: Yes (Other)
  Sender: FDA-Public Use
  Company Number: MX-009507513-1905MEX001853

PATIENT
  Age: 42 Year
  Sex: Male
  Weight: 85 kg

DRUGS (6)
  1. KETOROLAC TROMETHAMINE. [Concomitant]
     Active Substance: KETOROLAC TROMETHAMINE
     Indication: PAIN
     Dosage: 30 MG, SINGLE DOSE
     Route: 042
     Dates: start: 20190426, end: 20190426
  2. ONDANSETRON [Concomitant]
     Active Substance: ONDANSETRON
     Indication: NAUSEA
     Dosage: 8 MG, EVERY 8 HOURS
     Route: 042
     Dates: start: 20190426
  3. ACETAMINOPHEN. [Concomitant]
     Active Substance: ACETAMINOPHEN
     Indication: PAIN
     Dosage: 1 G, EVERY 8 HOURS
     Route: 042
     Dates: start: 20190426
  4. ALMAX [Concomitant]
     Indication: PROPHYLAXIS
     Dosage: 15 ML, EVERY 8 HOURS
     Route: 048
     Dates: start: 20190426
  5. INVANZ [Suspect]
     Active Substance: ERTAPENEM SODIUM
     Indication: ANTIBIOTIC THERAPY
     Dosage: 1 G 1 TIME EVERY 24 HOURS
     Route: 042
     Dates: start: 20190426, end: 20190426
  6. ULSEN (OMEPRAZOLE) [Concomitant]
     Indication: PROPHYLAXIS
     Dosage: 40 MG, EVERY 12 HOURS
     Route: 042
     Dates: start: 20190426

REACTIONS (2)
  - Discomfort [Recovered/Resolved]
  - Rash morbilliform [Recovered/Resolved]

NARRATIVE: CASE EVENT DATE: 20190426
